FAERS Safety Report 7772559-8 (Version None)
Quarter: 2011Q3

REPORT INFORMATION
  Report Type: 
  Country: None (occurrence: None)
  Receive Date: 20110922
  Receipt Date: 20110701
  Transmission Date: 20111222
  Serious: No
  Sender: FDA-Public Use
  Company Number: US-ASTRAZENECA-2011SE39741

PATIENT
  Age: 59 Year
  Sex: Female

DRUGS (2)
  1. SEROQUEL [Suspect]
     Indication: ANXIETY
     Dosage: TOOK HALF OF 100 MG
     Route: 048
  2. LUNESTRA [Concomitant]

REACTIONS (2)
  - INCORRECT DOSE ADMINISTERED [None]
  - CONSTIPATION [None]
